FAERS Safety Report 8988389 (Version 1)
Quarter: 2012Q4

REPORT INFORMATION
  Report Type: Spontaneous
  Country: US (occurrence: None)
  Receive Date: 20121220
  Receipt Date: 20121220
  Transmission Date: 20130627
  Serious: Yes (Other)
  Sender: FDA-Public Use
  Company Number: None

PATIENT
  Age: 30 Year
  Sex: Male

DRUGS (1)
  1. COPAXONE 20MG TEVA PHARMACEUTICALS [Suspect]
     Indication: MULTIPLE SCLEROSIS
     Dosage: 20MG  DAILY  SUBCUTANEOUS
From 4 YRS AGO to 11/30/2012
     Route: 058
     Dates: end: 20121130

REACTIONS (5)
  - Anaphylactic reaction [None]
  - Nausea [None]
  - Rash [None]
  - Urticaria [None]
  - Dyspnoea [None]
